FAERS Safety Report 5883489-0 (Version None)
Quarter: 2008Q3

REPORT INFORMATION
  Report Type: 
  Country: None (occurrence: None)
  Receive Date: 20080915
  Receipt Date: 20080904
  Transmission Date: 20090109
  Serious: Yes (Other)
  Sender: FDA-Public Use
  Company Number: PHHY2008JP16434

PATIENT
  Sex: Female

DRUGS (4)
  1. SANDIMMUNE [Suspect]
     Indication: COLITIS ULCERATIVE
     Dosage: ABOUT 200 MG/DAY
     Route: 042
     Dates: start: 20071201, end: 20071201
  2. PENTASA [Concomitant]
     Indication: COLITIS ULCERATIVE
     Route: 048
  3. SALAZOPYRIN [Concomitant]
     Indication: COLITIS ULCERATIVE
     Route: 048
  4. PREDNISOLONE [Concomitant]
     Indication: COLITIS ULCERATIVE
     Route: 042

REACTIONS (2)
  - DEPRESSED LEVEL OF CONSCIOUSNESS [None]
  - TOXIC ENCEPHALOPATHY [None]
